FAERS Safety Report 16358465 (Version 1)
Quarter: 2019Q2

REPORT INFORMATION
  Report Type: Report from Study
  Country: AU (occurrence: AU)
  Receive Date: 20190527
  Receipt Date: 20190527
  Transmission Date: 20190711
  Serious: Yes (Hospitalization)
  Sender: FDA-Public Use
  Company Number: AU-GLAXOSMITHKLINE-AU2019GSK081883

PATIENT
  Sex: Male
  Weight: 80 kg

DRUGS (4)
  1. PNEUMOCOCCAL VACCINE POLYVALENT NOS [Concomitant]
     Active Substance: PNEUMOCOCCAL VACCINE POLYVALENT
     Indication: PROPHYLAXIS
  2. INFLUENZA VACCINE [Concomitant]
     Active Substance: INFLUENZA VIRUS VACCINE
     Indication: PROPHYLAXIS
  3. SYMBICORT [Suspect]
     Active Substance: BUDESONIDE\FORMOTEROL FUMARATE DIHYDRATE
     Indication: CHRONIC OBSTRUCTIVE PULMONARY DISEASE
     Dosage: UNK (100/6-200/6-400/12)
     Route: 055
  4. UMECLIDINIUM BROMIDE [Suspect]
     Active Substance: UMECLIDINIUM BROMIDE
     Indication: CHRONIC OBSTRUCTIVE PULMONARY DISEASE
     Dosage: UNK (62.5 UG)
     Route: 055
     Dates: start: 2018

REACTIONS (5)
  - Wheezing [Unknown]
  - Knee operation [Recovered/Resolved]
  - Upper respiratory tract infection [Recovered/Resolved]
  - Chronic obstructive pulmonary disease [Recovered/Resolved]
  - Drug ineffective [Not Recovered/Not Resolved]
